FAERS Safety Report 5758653-1 (Version None)
Quarter: 2008Q2

REPORT INFORMATION
  Report Type: 
  Country: None (occurrence: None)
  Receive Date: 20080530
  Receipt Date: 20080513
  Transmission Date: 20081010
  Serious: Yes (Hospitalization, Disabling)
  Sender: FDA-Public Use
  Company Number: PHRM2008FR01315

PATIENT
  Age: 78 Year
  Sex: Female

DRUGS (4)
  1. GLEEVEC [Suspect]
     Indication: GASTROINTESTINAL STROMAL TUMOUR
     Dosage: 400 MG, QD, ORAL
     Route: 048
     Dates: start: 20070201, end: 20080222
  2. OXAZEPAM [Suspect]
     Indication: GASTROINTESTINAL DISORDER
     Dosage: , ORAL
     Route: 048
     Dates: start: 20030101, end: 20080222
  3. XANAX [Suspect]
     Dosage: , ORAL
     Route: 048
     Dates: start: 20030101, end: 20080222
  4. IMODIUM ^JANSSEN-CILAG^ (LOPERAMIDE HYDROCHLORIDE) [Concomitant]

REACTIONS (7)
  - CYTOLYTIC HEPATITIS [None]
  - GASTROINTESTINAL STROMAL TUMOUR [None]
  - GENERAL PHYSICAL HEALTH DETERIORATION [None]
  - HEPATIC FAILURE [None]
  - HEPATIC FIBROSIS [None]
  - HEPATIC INFARCTION [None]
  - PROTHROMBIN TIME RATIO DECREASED [None]
